FAERS Safety Report 9926564 (Version 3)
Quarter: 2015Q3

REPORT INFORMATION
  Report Type: Spontaneous
  Country: US (occurrence: US)
  Receive Date: 20140226
  Receipt Date: 20150807
  Transmission Date: 20151125
  Serious: No
  Sender: FDA-Public Use
  Company Number: US-AMGEN-USASP2013074597

PATIENT
  Age: 30 Year
  Sex: Male
  Weight: 115.65 kg

DRUGS (3)
  1. ENBREL [Suspect]
     Active Substance: ETANERCEPT
     Indication: PSORIATIC ARTHROPATHY
     Dosage: 50 MG, QWK
     Route: 058
     Dates: start: 20110511, end: 201507
  2. COLCHICINE. [Suspect]
     Active Substance: COLCHICINE
     Indication: ARTHRALGIA
     Dosage: 0.6 MG, UNK
     Route: 065
     Dates: start: 2010, end: 20150723
  3. ENBREL [Suspect]
     Active Substance: ETANERCEPT
     Indication: ENTHESOPATHY

REACTIONS (9)
  - Arthralgia [Recovering/Resolving]
  - Back pain [Recovering/Resolving]
  - Pain in extremity [Not Recovered/Not Resolved]
  - Drug ineffective [Unknown]
  - Mobility decreased [Recovered/Resolved]
  - Off label use [Not Recovered/Not Resolved]
  - Musculoskeletal stiffness [Recovering/Resolving]
  - Joint stiffness [Recovering/Resolving]
  - Drug effect incomplete [Not Recovered/Not Resolved]

NARRATIVE: CASE EVENT DATE: 201308
